FAERS Safety Report 17409558 (Version 1)
Quarter: 2020Q1

REPORT INFORMATION
  Report Type: Spontaneous
  Country: JP (occurrence: JP)
  Receive Date: 20200212
  Receipt Date: 20200212
  Transmission Date: 20200409
  Serious: Yes (Death)
  Sender: FDA-Public Use
  Company Number: JP-JNJFOC-20200211761

PATIENT
  Age: 59 Year
  Sex: Female

DRUGS (3)
  1. DUROTEP [Suspect]
     Active Substance: FENTANYL
     Dosage: 25MCG/HR
     Route: 062
  2. DUROTEP [Suspect]
     Active Substance: FENTANYL
     Indication: CANCER PAIN
     Dosage: 12.5MCG/HR
     Route: 062
  3. OPSO [Suspect]
     Active Substance: MORPHINE HYDROCHLORIDE
     Indication: CANCER PAIN
     Dosage: UNKNOWN
     Route: 048

REACTIONS (1)
  - Leukaemia [Fatal]
